FAERS Safety Report 7419652-7 (Version None)
Quarter: 2011Q2

REPORT INFORMATION
  Report Type: 
  Country: None (occurrence: None)
  Receive Date: 20110418
  Receipt Date: 20110405
  Transmission Date: 20111010
  Serious: Yes (Hospitalization, Other)
  Sender: FDA-Public Use
  Company Number: US-JNJFOC-20110402936

PATIENT
  Sex: Female
  Weight: 55.34 kg

DRUGS (5)
  1. DURAGESIC [Suspect]
     Route: 062
  2. DURAGESIC [Suspect]
     Dosage: 2-75 UG/HR PATCHES
     Route: 062
  3. DURAGESIC [Suspect]
     Indication: BACK PAIN
     Route: 062
  4. FENTANYL-100 [Suspect]
     Indication: BACK PAIN
     Dosage: 2-75 UG/HR PATCHES EVERY 72 HOURS
     Route: 062
  5. FENTANYL-100 [Suspect]
     Indication: PRODUCT USED FOR UNKNOWN INDICATION
     Route: 062

REACTIONS (6)
  - PRODUCT QUALITY ISSUE [None]
  - CARDIAC OPERATION [None]
  - DRUG INEFFECTIVE [None]
  - PAIN [None]
  - THERAPEUTIC RESPONSE DELAYED [None]
  - BEDRIDDEN [None]
